FAERS Safety Report 25037733 (Version 1)
Quarter: 2025Q1

REPORT INFORMATION
  Report Type: Spontaneous
  Country: US (occurrence: US)
  Receive Date: 20250304
  Receipt Date: 20250304
  Transmission Date: 20250409
  Serious: Yes (Hospitalization, Other)
  Sender: BRISTOL-MYERS SQUIBB COMPANY
  Company Number: US-BRISTOL-MYERS SQUIBB COMPANY-2025-028533

PATIENT
  Age: 56 Year
  Sex: Male

DRUGS (1)
  1. POMALYST [Suspect]
     Active Substance: POMALIDOMIDE
     Indication: Plasma cell myeloma
     Route: 048
     Dates: start: 20240816, end: 20250111

REACTIONS (5)
  - Neutropenic sepsis [Unknown]
  - Acute kidney injury [Unknown]
  - Pelvic fracture [Unknown]
  - Plasma cell myeloma refractory [Unknown]
  - Amyloidosis [Unknown]

NARRATIVE: CASE EVENT DATE: 20250111
